FAERS Safety Report 6359748-4 (Version None)
Quarter: 2009Q3

REPORT INFORMATION
  Report Type: 
  Country: None (occurrence: None)
  Receive Date: 20090917
  Receipt Date: 20090907
  Transmission Date: 20100115
  Serious: Yes (Other)
  Sender: FDA-Public Use
  Company Number: TR-B.I. PHARMACEUTICALS,INC./RIDGEFIELD-2009-DE-05688GD

PATIENT
  Sex: Male

DRUGS (9)
  1. SERTRALINE HCL [Suspect]
     Indication: BIPOLAR I DISORDER
     Dosage: 50 MG
  2. SERTRALINE HCL [Suspect]
     Dosage: 100 MG
  3. PRAMIPEXOLE DIHYDROCHLORIDE [Suspect]
     Indication: BIPOLAR I DISORDER
     Dosage: 0.375 MG
  4. PRAMIPEXOLE DIHYDROCHLORIDE [Suspect]
     Dosage: 0.75 MG
  5. LITHIUM CARBONATE [Suspect]
     Indication: BIPOLAR I DISORDER
     Dosage: 900 MG
  6. LAMOTRIGINE [Suspect]
     Indication: BIPOLAR I DISORDER
     Dosage: 200 - 300 MG
  7. VENLAFAXINE HCL [Suspect]
     Indication: BIPOLAR I DISORDER
     Dosage: 225 MG
  8. VENLAFAXINE HCL [Suspect]
     Dosage: 150 MG
  9. REBOXETINE [Suspect]
     Indication: BIPOLAR I DISORDER
     Dosage: 6 MG

REACTIONS (5)
  - DRUG INEFFECTIVE [None]
  - EJACULATION DISORDER [None]
  - FAECAL INCONTINENCE [None]
  - SLEEP DISORDER [None]
  - URINARY RETENTION [None]
